FAERS Safety Report 8830082 (Version 1)
Quarter: 2012Q4

REPORT INFORMATION
  Report Type: Spontaneous
  Country: US (occurrence: None)
  Receive Date: 20121005
  Receipt Date: 20121005
  Transmission Date: 20130627
  Serious: Yes (Disabling)
  Sender: FDA-Public Use
  Company Number: None

PATIENT
  Age: 67 Year
  Sex: Male
  Weight: 79.83 kg

DRUGS (2)
  1. DIOVAN [Suspect]
     Dosage: 325 MG 1/DAY MOUTH
     Route: 048
     Dates: start: 20120115
  2. HYDROCHLOROTHIAZIDE [Suspect]
     Dosage: 25 MG 1/DAY MOUTH
     Route: 048
     Dates: start: 20120115

REACTIONS (4)
  - Joint stiffness [None]
  - Pain in extremity [None]
  - Tendon rupture [None]
  - Tendon injury [None]
